FAERS Safety Report 14841787 (Version 1)
Quarter: 2018Q2

REPORT INFORMATION
  Report Type: Spontaneous
  Country: US (occurrence: US)
  Receive Date: 20180503
  Receipt Date: 20180503
  Transmission Date: 20180711
  Serious: No
  Sender: FDA-Public Use
  Company Number: US-009507513-1805USA000289

PATIENT
  Sex: Male

DRUGS (1)
  1. INTRON A [Suspect]
     Active Substance: INTERFERON ALFA-2B
     Indication: MALIGNANT NEOPLASM OF EYE
     Route: 047

REACTIONS (3)
  - Incorrect route of drug administration [Unknown]
  - No adverse event [Unknown]
  - Product use in unapproved indication [Unknown]
